FAERS Safety Report 14731970 (Version 1)
Quarter: 2018Q2

REPORT INFORMATION
  Report Type: Spontaneous
  Country: US (occurrence: US)
  Receive Date: 20180408
  Receipt Date: 20180408
  Transmission Date: 20180711
  Serious: Yes (Other)
  Sender: FDA-Public Use
  Company Number: US-ROCHE-2103088

PATIENT
  Sex: Male

DRUGS (19)
  1. CYCLOBENZAPRINE. [Concomitant]
     Active Substance: CYCLOBENZAPRINE
  2. FLUTICASONE PROPIONATE. [Concomitant]
     Active Substance: FLUTICASONE PROPIONATE
  3. ZOLPIDEM TARTRATE. [Concomitant]
     Active Substance: ZOLPIDEM TARTRATE
  4. MYRBETRIQ [Concomitant]
     Active Substance: MIRABEGRON
  5. GABAPENTIN. [Concomitant]
     Active Substance: GABAPENTIN
  6. SIMVASTATIN. [Concomitant]
     Active Substance: SIMVASTATIN
  7. TESTOSTERONE. [Concomitant]
     Active Substance: TESTOSTERONE
  8. CYANOCOBALAMIN. [Concomitant]
     Active Substance: CYANOCOBALAMIN
  9. ERGOCALCIFEROL. [Concomitant]
     Active Substance: ERGOCALCIFEROL
  10. ACETAMINOPHEN. [Concomitant]
     Active Substance: ACETAMINOPHEN
  11. ESBRIET [Suspect]
     Active Substance: PIRFENIDONE
     Indication: IDIOPATHIC PULMONARY FIBROSIS
     Dosage: ONGOING: UNKNOWN, 267 MG/3 TABS
     Route: 048
     Dates: start: 20171027
  12. ALPRAZOLAM. [Concomitant]
     Active Substance: ALPRAZOLAM
  13. TOPAMAX [Concomitant]
     Active Substance: TOPIRAMATE
  14. RITUXAN [Suspect]
     Active Substance: RITUXIMAB
     Indication: PRODUCT USED FOR UNKNOWN INDICATION
     Route: 065
  15. CLOPIDOGREL BISULFATE. [Concomitant]
     Active Substance: CLOPIDOGREL BISULFATE
  16. LAMOTRIGINE. [Concomitant]
     Active Substance: LAMOTRIGINE
  17. ESOMEPRAZOLE SODIUM. [Concomitant]
     Active Substance: ESOMEPRAZOLE SODIUM
  18. ASPIRIN. [Concomitant]
     Active Substance: ASPIRIN
  19. CITALOPRAM HYDROBROMIDE. [Concomitant]
     Active Substance: CITALOPRAM HYDROBROMIDE

REACTIONS (1)
  - Lymphoma [Unknown]
